FAERS Safety Report 25980602 (Version 3)
Quarter: 2025Q4

REPORT INFORMATION
  Report Type: Spontaneous
  Country: US (occurrence: US)
  Receive Date: 20251030
  Receipt Date: 20251110
  Transmission Date: 20260117
  Serious: Yes (Hospitalization, Other)
  Sender: PFIZER
  Company Number: US-PFIZER INC-PV202500127443

PATIENT
  Age: 34 Year
  Sex: Male

DRUGS (2)
  1. LEVETIRACETAM [Suspect]
     Active Substance: LEVETIRACETAM
     Indication: Generalised tonic-clonic seizure
     Dosage: 1 G
     Route: 042
  2. LEVETIRACETAM [Suspect]
     Active Substance: LEVETIRACETAM
     Dosage: 500 MG, 2X/DAY (LOADING DOSE)
     Route: 042

REACTIONS (1)
  - Rhabdomyolysis [Recovered/Resolved]
